FAERS Safety Report 11183157 (Version 2)
Quarter: 2015Q3

REPORT INFORMATION
  Report Type: Spontaneous
  Country: US (occurrence: US)
  Receive Date: 20150611
  Receipt Date: 20150914
  Transmission Date: 20151125
  Serious: No
  Sender: FDA-Public Use
  Company Number: US-GLAXOSMITHKLINE-US2015079940

PATIENT
  Sex: Female

DRUGS (1)
  1. AVODART [Suspect]
     Active Substance: DUTASTERIDE
     Indication: ACCIDENTAL EXPOSURE TO PRODUCT
     Dosage: UNK, U
     Route: 067

REACTIONS (6)
  - Urinary tract infection [Unknown]
  - Exposure via body fluid [Unknown]
  - Pruritus [Unknown]
  - Discomfort [Unknown]
  - Vulvovaginal burning sensation [Recovered/Resolved]
  - Accidental exposure to product [Unknown]
